FAERS Safety Report 10491239 (Version 1)
Quarter: 2014Q4

REPORT INFORMATION
  Report Type: Spontaneous
  Country: US (occurrence: US)
  Receive Date: 20141002
  Receipt Date: 20141002
  Transmission Date: 20150528
  Serious: No
  Sender: FDA-Public Use
  Company Number: US-GLAXOSMITHKLINE-A1049700A

PATIENT
  Age: 64 Year
  Sex: Female

DRUGS (4)
  1. ADVAIR HFA [Suspect]
     Active Substance: FLUTICASONE PROPIONATE\SALMETEROL XINAFOATE
     Indication: WHEEZING
     Dosage: 1PUFF TWICE PER DAY
     Route: 055
     Dates: start: 20131112
  2. VITAMINS [Concomitant]
     Active Substance: VITAMINS
  3. BABY ASPIRIN [Concomitant]
     Active Substance: ASPIRIN
  4. TETRACYCLINE [Concomitant]
     Active Substance: TETRACYCLINE

REACTIONS (1)
  - Off label use [Unknown]

NARRATIVE: CASE EVENT DATE: 20131112
